FAERS Safety Report 21515993 (Version 1)
Quarter: 2022Q4

REPORT INFORMATION
  Report Type: Spontaneous
  Country: CN (occurrence: CN)
  Receive Date: 20221027
  Receipt Date: 20221027
  Transmission Date: 20230113
  Serious: Yes (Life-Threatening, Other)
  Sender: FDA-Public Use
  Company Number: CN-MLMSERVICE-20221017-3867917-1

PATIENT
  Age: 26 Year
  Sex: Male

DRUGS (12)
  1. GEMCITABINE HYDROCHLORIDE [Suspect]
     Active Substance: GEMCITABINE HYDROCHLORIDE
     Indication: Metastases to central nervous system
     Dosage: 1,000 MG/M2 ON DAYS 1 AND 8
     Route: 042
     Dates: start: 2021, end: 2021
  2. GEMCITABINE HYDROCHLORIDE [Suspect]
     Active Substance: GEMCITABINE HYDROCHLORIDE
     Indication: Metastases to liver
  3. GEMCITABINE HYDROCHLORIDE [Suspect]
     Active Substance: GEMCITABINE HYDROCHLORIDE
     Indication: Metastases to bone
  4. GEMCITABINE HYDROCHLORIDE [Suspect]
     Active Substance: GEMCITABINE HYDROCHLORIDE
     Indication: Nasopharyngeal cancer metastatic
  5. CISPLATIN [Suspect]
     Active Substance: CISPLATIN
     Indication: Metastases to bone
     Dosage: 80 MG/M2 ON DAY 1
     Route: 042
     Dates: start: 2021, end: 2021
  6. CISPLATIN [Suspect]
     Active Substance: CISPLATIN
     Indication: Metastases to liver
  7. CISPLATIN [Suspect]
     Active Substance: CISPLATIN
     Indication: Metastases to central nervous system
  8. CISPLATIN [Suspect]
     Active Substance: CISPLATIN
     Indication: Metastases to liver
  9. CAMRELIZUMAB [Suspect]
     Active Substance: CAMRELIZUMAB
     Indication: Nasopharyngeal cancer metastatic
     Dosage: 200 MG ON DAY 1
     Route: 042
     Dates: start: 2021, end: 2021
  10. CAMRELIZUMAB [Suspect]
     Active Substance: CAMRELIZUMAB
     Indication: Metastases to liver
  11. CAMRELIZUMAB [Suspect]
     Active Substance: CAMRELIZUMAB
     Indication: Metastases to central nervous system
  12. CAMRELIZUMAB [Suspect]
     Active Substance: CAMRELIZUMAB
     Indication: Metastases to bone

REACTIONS (4)
  - Granulocytopenia [Unknown]
  - Thrombocytopenia [Unknown]
  - Leukopenia [Unknown]
  - Transaminases increased [Unknown]

NARRATIVE: CASE EVENT DATE: 20210101
